FAERS Safety Report 8341421-4 (Version None)
Quarter: 2012Q2

REPORT INFORMATION
  Report Type: 
  Country: None (occurrence: None)
  Receive Date: 20120507
  Receipt Date: 20120424
  Transmission Date: 20120825
  Serious: Yes (Life-Threatening, Hospitalization)
  Sender: FDA-Public Use
  Company Number: NO-MERCK-1204USA03768

PATIENT
  Age: 84 Year
  Sex: Female

DRUGS (6)
  1. ASPIRIN [Concomitant]
     Indication: CARDIOVASCULAR DISORDER
     Route: 048
  2. ZOCOR [Suspect]
     Indication: BLOOD CHOLESTEROL INCREASED
     Route: 048
     Dates: start: 20110101, end: 20120201
  3. AMLODIPINE [Suspect]
     Indication: CARDIOVASCULAR DISORDER
     Dosage: IT APPEARS AS AMLODIPINE ALSO HAS BEEN WITHDRAWN
     Route: 048
  4. METOPROLOL [Concomitant]
     Indication: CARDIOVASCULAR DISORDER
     Dosage: CONTROLLED RELEASED TABLETS
     Route: 048
  5. LISINOPRIL [Concomitant]
     Indication: CARDIOVASCULAR DISORDER
     Route: 048
  6. LANOXIN [Concomitant]
     Indication: CARDIOVASCULAR DISORDER
     Dosage: WITHDRAWN AFTER TIA
     Route: 048

REACTIONS (5)
  - RENAL FAILURE ACUTE [None]
  - LISTLESS [None]
  - GENERAL PHYSICAL HEALTH DETERIORATION [None]
  - RHABDOMYOLYSIS [None]
  - MUSCULAR WEAKNESS [None]
